FAERS Safety Report 13135070 (Version 2)
Quarter: 2017Q1

REPORT INFORMATION
  Report Type: Spontaneous
  Country: JP (occurrence: JP)
  Receive Date: 20170120
  Receipt Date: 20170125
  Transmission Date: 20170428
  Serious: Yes (Other)
  Sender: FDA-Public Use
  Company Number: JP-TEVA-730423ISR

PATIENT
  Age: 56 Year
  Sex: Male

DRUGS (2)
  1. ATENOLOL. [Suspect]
     Active Substance: ATENOLOL
     Indication: CHEST DISCOMFORT
     Dosage: 25 MILLIGRAM DAILY;
     Route: 048
  2. ASPIRIN. [Concomitant]
     Active Substance: ASPIRIN
     Indication: CHEST DISCOMFORT
     Dosage: LOW DOSE ASPIRIN
     Route: 065

REACTIONS (3)
  - Cardiac arrest [Recovered/Resolved]
  - Ventricular fibrillation [Recovered/Resolved]
  - Arteriospasm coronary [Recovered/Resolved]
